FAERS Safety Report 25872055 (Version 2)
Quarter: 2025Q4

REPORT INFORMATION
  Report Type: Spontaneous
  Country: JP (occurrence: JP)
  Receive Date: 20251002
  Receipt Date: 20251211
  Transmission Date: 20260118
  Serious: Yes (Other)
  Sender: ABBVIE
  Company Number: JP-ABBVIE-6482405

PATIENT
  Age: 50 Year
  Sex: Male

DRUGS (1)
  1. RINVOQ [Suspect]
     Active Substance: UPADACITINIB
     Indication: Dermatitis atopic
     Dosage: FORM STRENGTH: 15 MILLIGRAM,  ABOUT A YEAR
     Route: 048
     Dates: start: 20240621, end: 20250506

REACTIONS (1)
  - Extradural abscess [Recovered/Resolved]

NARRATIVE: CASE EVENT DATE: 20250506
